FAERS Safety Report 7121490-X (Version None)
Quarter: 2010Q4

REPORT INFORMATION
  Report Type: 
  Country: None (occurrence: None)
  Receive Date: 20101124
  Receipt Date: 20101110
  Transmission Date: 20110411
  Serious: Yes (Hospitalization)
  Sender: FDA-Public Use
  Company Number: US-ELI_LILLY_AND_COMPANY-US201008007882

PATIENT
  Sex: Female

DRUGS (5)
  1. FORTEO [Suspect]
     Indication: OSTEOPOROSIS
     Dosage: 20 UG, DAILY (1/D)
     Dates: start: 20100822
  2. PREDNISONE [Concomitant]
  3. CALTRATE D                         /00944201/ [Concomitant]
     Dosage: 1 D/F, 2/D
  4. DIGOXIN [Concomitant]
     Dosage: 1 D/F, DAILY (1/D)
  5. METOPROLOL TARTRATE [Concomitant]
     Dosage: 25 MG, 2/D

REACTIONS (5)
  - ARRHYTHMIA [None]
  - HEART RATE INCREASED [None]
  - LIMB DISCOMFORT [None]
  - MUSCULOSKELETAL DISCOMFORT [None]
  - URINARY TRACT INFECTION [None]
